FAERS Safety Report 20631721 (Version 1)
Quarter: 2022Q1

REPORT INFORMATION
  Report Type: Spontaneous
  Country: JP (occurrence: JP)
  Receive Date: 20220324
  Receipt Date: 20220324
  Transmission Date: 20220423
  Serious: Yes (Death)
  Sender: FDA-Public Use
  Company Number: JP-BAYER-2022A043006

PATIENT
  Sex: Female

DRUGS (2)
  1. ADEMPAS [Suspect]
     Active Substance: RIOCIGUAT
  2. OPSUMIT [Concomitant]
     Active Substance: MACITENTAN

REACTIONS (1)
  - Death [Fatal]
